FAERS Safety Report 8576247-X (Version None)
Quarter: 2012Q3

REPORT INFORMATION
  Report Type: 
  Country: None (occurrence: None)
  Receive Date: 20120807
  Receipt Date: 20120727
  Transmission Date: 20120928
  Serious: Yes (Hospitalization, Other)
  Sender: FDA-Public Use
  Company Number: US-BAYER-201040633NA

PATIENT
  Age: 16 Year
  Sex: Female

DRUGS (7)
  1. EXTRA STRENGTH TYLENOL [Concomitant]
  2. VICODIN [Concomitant]
     Indication: CHEST PAIN
  3. CIPROFLOXACIN [Concomitant]
  4. YASMIN [Suspect]
     Route: 048
     Dates: start: 20040101
  5. DROSPIRENONE AND ETHINYL ESTRADIOL [Suspect]
     Dates: start: 20040101
  6. YAZ [Suspect]
     Indication: MENSTRUATION IRREGULAR
     Route: 048
     Dates: start: 20040101
  7. OXYCODONE HCL [Concomitant]
     Indication: CHEST PAIN

REACTIONS (4)
  - PULMONARY EMBOLISM [None]
  - DEEP VEIN THROMBOSIS [None]
  - PAIN [None]
  - GALLBLADDER DISORDER [None]
